FAERS Safety Report 7474063-3 (Version None)
Quarter: 2011Q2

REPORT INFORMATION
  Report Type: 
  Country: None (occurrence: None)
  Receive Date: 20110511
  Receipt Date: 20110506
  Transmission Date: 20111010
  Serious: Yes (Hospitalization)
  Sender: FDA-Public Use
  Company Number: PHHO2010DE07073

PATIENT
  Sex: Male
  Weight: 83 kg

DRUGS (7)
  1. SANDIMMUNE [Suspect]
     Indication: RENAL TRANSPLANT
     Dosage: 600 MG, BID
     Route: 048
     Dates: start: 20100127
  2. URBASON [Concomitant]
     Indication: RENAL TRANSPLANT
     Dosage: 375 MG, BID
     Route: 048
     Dates: start: 20100127, end: 20100127
  3. URBASON [Concomitant]
     Dosage: 8 MG, BID
     Route: 048
  4. MYFORTIC [Suspect]
     Dosage: 720 MG, BID
     Route: 048
     Dates: start: 20100305
  5. NO TREATMENT RECEIVED [Suspect]
     Indication: RENAL TRANSPLANT
     Dosage: NO TREATMENT
  6. MYFORTIC [Suspect]
     Indication: RENAL TRANSPLANT
     Dosage: 1440 MG, BID
     Route: 048
     Dates: start: 20100127, end: 20100304
  7. SANDIMMUNE [Suspect]
     Dosage: 100 MG, BID
     Route: 048
     Dates: start: 20100411

REACTIONS (3)
  - ARRHYTHMIA [None]
  - ATRIAL FIBRILLATION [None]
  - BLOOD CREATININE INCREASED [None]
